FAERS Safety Report 9115613 (Version 1)
Quarter: 2013Q1

REPORT INFORMATION
  Report Type: Spontaneous
  Country: US (occurrence: US)
  Receive Date: 20130225
  Receipt Date: 20130225
  Transmission Date: 20140127
  Serious: No
  Sender: FDA-Public Use
  Company Number: US-BRISTOL-MYERS SQUIBB COMPANY-16358277

PATIENT
  Sex: Female
  Weight: 40.82 kg

DRUGS (1)
  1. KENALOG [Suspect]
     Indication: DERMATITIS

REACTIONS (2)
  - Injection site atrophy [Not Recovered/Not Resolved]
  - Injection site pain [Unknown]
